FAERS Safety Report 7774326-8 (Version None)
Quarter: 2011Q3

REPORT INFORMATION
  Report Type: 
  Country: None (occurrence: None)
  Receive Date: 20110923
  Receipt Date: 20110913
  Transmission Date: 20111222
  Serious: Yes (Other)
  Sender: FDA-Public Use
  Company Number: PHFR2011GB04149

PATIENT
  Sex: Male
  Weight: 96.2 kg

DRUGS (3)
  1. CLOZAPINE [Suspect]
     Indication: SCHIZOPHRENIA
     Dosage: 100 MG MOR 200 MG NOCTE
     Route: 048
     Dates: start: 20100311
  2. LEVOMEPROMAZINE [Concomitant]
     Indication: AGITATION
     Dosage: 75 MG, PRN
     Route: 048
  3. TRIHEXYPHENIDYL HCL [Concomitant]
     Indication: EXTRAPYRAMIDAL DISORDER
     Dosage: 5 MG, PRN
     Route: 048

REACTIONS (4)
  - DIFFERENTIAL WHITE BLOOD CELL COUNT ABNORMAL [None]
  - NEUTROPHIL COUNT INCREASED [None]
  - WHITE BLOOD CELL COUNT INCREASED [None]
  - MALAISE [None]
